FAERS Safety Report 16220306 (Version 3)
Quarter: 2019Q3

REPORT INFORMATION
  Report Type: Report from Study
  Country: US (occurrence: US)
  Receive Date: 20190420
  Receipt Date: 20190805
  Transmission Date: 20191004
  Serious: Yes (Other)
  Sender: FDA-Public Use
  Company Number: PHEH2019US016772

PATIENT
  Sex: Female

DRUGS (1)
  1. COSENTYX [Suspect]
     Active Substance: SECUKINUMAB
     Indication: PSORIASIS
     Dosage: 300 MG, QMO
     Route: 058

REACTIONS (6)
  - Feeling abnormal [Unknown]
  - Hyperhidrosis [Unknown]
  - Psoriasis [Unknown]
  - Neoplasm malignant [Unknown]
  - Arthralgia [Unknown]
  - Drug ineffective [Unknown]
